FAERS Safety Report 15164422 (Version 1)
Quarter: 2018Q3

REPORT INFORMATION
  Report Type: Spontaneous
  Country: AT (occurrence: AT)
  Receive Date: 20180719
  Receipt Date: 20180719
  Transmission Date: 20181010
  Serious: Yes (Other)
  Sender: FDA-Public Use
  Company Number: AT-EDENBRIDGE PHARMACEUTICALS, LLC-AT-2018EDE000227

PATIENT
  Age: 46 Year
  Sex: Female
  Weight: 64 kg

DRUGS (2)
  1. PREDNISOLONE SODIUM PHOSPHATE. [Suspect]
     Active Substance: PREDNISOLONE SODIUM PHOSPHATE
     Indication: PRODUCT USED FOR UNKNOWN INDICATION
     Dosage: 25 MG, QD
  2. PREDNISOLONE SODIUM PHOSPHATE. [Suspect]
     Active Substance: PREDNISOLONE SODIUM PHOSPHATE
     Dosage: 5 MG, QD

REACTIONS (11)
  - Cardiac dysfunction [Unknown]
  - Bundle branch block right [Unknown]
  - Ventricular septal defect [Unknown]
  - Hypokinesia [Unknown]
  - Left ventricular enlargement [Unknown]
  - Sinus tachycardia [Unknown]
  - Systolic dysfunction [Unknown]
  - Bundle branch block left [Unknown]
  - Left atrial enlargement [Unknown]
  - Mitral valve incompetence [Unknown]
  - Diastolic dysfunction [Unknown]
